FAERS Safety Report 9013584 (Version 1)
Quarter: 2013Q1

REPORT INFORMATION
  Report Type: Spontaneous
  Country: US (occurrence: None)
  Receive Date: 20130107
  Receipt Date: 20130107
  Transmission Date: 20140127
  Serious: Yes (Hospitalization)
  Sender: FDA-Public Use
  Company Number: None

PATIENT
  Age: 7 Year
  Sex: Male
  Weight: 29.94 kg

DRUGS (1)
  1. MOXEZA 0.5% ALCON [Suspect]
     Indication: CONJUNCTIVITIS INFECTIVE
     Dosage: 1 BID OPHTHALMIC
     Route: 047
     Dates: start: 20121217

REACTIONS (5)
  - Aspartate aminotransferase increased [None]
  - Hypersomnia [None]
  - Blood bilirubin increased [None]
  - Alanine aminotransferase increased [None]
  - Chromaturia [None]
